FAERS Safety Report 13044322 (Version 1)
Quarter: 2016Q4

REPORT INFORMATION
  Report Type: Spontaneous
  Country: US (occurrence: US)
  Receive Date: 20161219
  Receipt Date: 20161219
  Transmission Date: 20170207
  Serious: No
  Sender: FDA-Public Use
  Company Number: None

PATIENT
  Age: 75 Year
  Sex: Female
  Weight: 82.63 kg

DRUGS (1)
  1. PIPERACILLIN-TAZOBACTAM AUROMEDICS [Suspect]
     Active Substance: PIPERACILLIN SODIUM\TAZOBACTAM SODIUM
     Indication: DEVICE RELATED INFECTION
     Route: 042
     Dates: start: 20161025, end: 20161101

REACTIONS (2)
  - Rash erythematous [None]
  - Drug hypersensitivity [None]

NARRATIVE: CASE EVENT DATE: 20161101
